FAERS Safety Report 4528947-6 (Version None)
Quarter: 2004Q4

REPORT INFORMATION
  Report Type: 
  Country: None (occurrence: None)
  Receive Date: 20041214
  Receipt Date: 20041126
  Transmission Date: 20050328
  Serious: No
  Sender: FDA-Public Use
  Company Number: B0358297A

PATIENT
  Age: 84 Year
  Sex: Female

DRUGS (4)
  1. VENTOLIN [Suspect]
     Indication: CHRONIC OBSTRUCTIVE AIRWAYS DISEASE
     Dosage: 5 MG/ TWELVE TIMES PER DAY /
  2. ALENDRONATE SODIUM [Concomitant]
  3. IPRATROPIUM BROMIDE+OXYGE [Concomitant]
  4. SALBUTAMOL SULPHATE [Concomitant]

REACTIONS (2)
  - ACUTE MYOCARDIAL INFARCTION [None]
  - ATRIAL FIBRILLATION [None]
